FAERS Safety Report 6557868-2 (Version None)
Quarter: 2010Q1

REPORT INFORMATION
  Report Type: 
  Country: None (occurrence: None)
  Receive Date: 20100129
  Receipt Date: 20090707
  Transmission Date: 20100710
  Serious: No
  Sender: FDA-Public Use
  Company Number: US-BAUSCH-2009BL003326

PATIENT
  Age: 43 Year
  Sex: Female
  Weight: 53 kg

DRUGS (5)
  1. SULFACETAMIDE SODIUM [Suspect]
     Indication: EYE INFECTION
     Route: 047
     Dates: start: 20090601, end: 20090701
  2. SYNTHROID [Concomitant]
     Indication: HYPOTHYROIDISM
     Route: 048
  3. MULTI-VITAMINS [Concomitant]
  4. VITAMIN C [Concomitant]
  5. CALCIUM [Concomitant]

REACTIONS (2)
  - DIARRHOEA [None]
  - GASTROINTESTINAL PAIN [None]
